FAERS Safety Report 13726352 (Version 1)
Quarter: 2017Q3

REPORT INFORMATION
  Report Type: Spontaneous
  Country: ZW (occurrence: US)
  Receive Date: 20170707
  Receipt Date: 20170707
  Transmission Date: 20171127
  Serious: No
  Sender: FDA-Public Use
  Company Number: US-WEST-WARD PHARMACEUTICALS CORP.-US-H14001-17-01640

PATIENT
  Age: 36 Year
  Sex: Female
  Weight: 49.94 kg

DRUGS (1)
  1. CIPROFLOXACIN. [Suspect]
     Active Substance: CIPROFLOXACIN
     Indication: URINARY TRACT INFECTION
     Route: 048
     Dates: start: 20170506, end: 201705

REACTIONS (6)
  - Rash pruritic [Recovering/Resolving]
  - Throat irritation [Recovered/Resolved]
  - Rash papular [Recovering/Resolving]
  - Nail fold inflammation [Not Recovered/Not Resolved]
  - Contusion [Not Recovered/Not Resolved]
  - Skin abrasion [Recovering/Resolving]

NARRATIVE: CASE EVENT DATE: 201705
